FAERS Safety Report 8221708-6 (Version None)
Quarter: 2012Q1

REPORT INFORMATION
  Report Type: 
  Country: None (occurrence: None)
  Receive Date: 20120320
  Receipt Date: 20120316
  Transmission Date: 20120608
  Serious: No
  Sender: FDA-Public Use
  Company Number: US-PFIZER INC-2012070002

PATIENT
  Sex: Female
  Weight: 73 kg

DRUGS (5)
  1. ACETYLSALICYLIC ACID [Concomitant]
     Dosage: 81 MG, DAILY
  2. PREMARIN [Concomitant]
     Indication: INCONTINENCE
     Dosage: UNK
     Dates: start: 20120201
  3. LISINOPRIL [Concomitant]
     Indication: PROPHYLAXIS
     Dosage: UNK
  4. GELNIQUE [Concomitant]
     Indication: INCONTINENCE
     Dosage: UNK
     Dates: start: 20120201
  5. ESTRING [Suspect]
     Indication: INCONTINENCE
     Dosage: 2 MG, UNK
     Route: 067
     Dates: start: 20100101, end: 20120101

REACTIONS (2)
  - BLOOD CHOLESTEROL INCREASED [None]
  - DRUG INEFFECTIVE [None]
